FAERS Safety Report 23311364 (Version 1)
Quarter: 2023Q4

REPORT INFORMATION
  Report Type: Spontaneous
  Country: US (occurrence: US)
  Receive Date: 20231219
  Receipt Date: 20231219
  Transmission Date: 20240110
  Serious: Yes (Other)
  Sender: FDA-Public Use
  Company Number: US-BEH-2023166429

PATIENT
  Age: 49 Year
  Sex: Female

DRUGS (3)
  1. HAEGARDA [Suspect]
     Active Substance: HUMAN C1-ESTERASE INHIBITOR
     Indication: Hereditary angioedema
     Dosage: 3000 INTERNATIONAL UNIT, BIW
     Route: 058
     Dates: start: 202210
  2. HAEGARDA [Suspect]
     Active Substance: HUMAN C1-ESTERASE INHIBITOR
     Indication: Prophylaxis
  3. OXYCODONE [Concomitant]
     Active Substance: OXYCODONE
     Indication: Pain
     Dosage: UNK, PRN
     Route: 065

REACTIONS (5)
  - Hereditary angioedema [Unknown]
  - Limb operation [Unknown]
  - Procedural pain [Unknown]
  - Therapy interrupted [Unknown]
  - No adverse event [Unknown]

NARRATIVE: CASE EVENT DATE: 20230101
